FAERS Safety Report 9315352 (Version 1)
Quarter: 2013Q2

REPORT INFORMATION
  Report Type: Spontaneous
  Country: JP (occurrence: JP)
  Receive Date: 20130529
  Receipt Date: 20130529
  Transmission Date: 20140414
  Serious: Yes (Other)
  Sender: FDA-Public Use
  Company Number: PHHY2013JP053167

PATIENT
  Sex: Female

DRUGS (3)
  1. TEGRETOL [Suspect]
     Dosage: 150 MG, DAILY (IN THREE DIVIDED DOSES)
     Route: 048
     Dates: start: 20130208, end: 20130220
  2. TEGRETOL [Suspect]
     Dosage: 300 MG, DAILY (IN THREE DIVIDED DOSES)
     Route: 048
     Dates: start: 20130221, end: 20130408
  3. SILECE [Concomitant]

REACTIONS (24)
  - Drug eruption [Unknown]
  - Pruritus [Unknown]
  - Pyrexia [Unknown]
  - Ocular hyperaemia [Unknown]
  - Rectal haemorrhage [Unknown]
  - Stomatitis [Unknown]
  - Headache [Unknown]
  - Lip swelling [Unknown]
  - Pharyngeal oedema [Unknown]
  - Oral discomfort [Unknown]
  - Eczema [Unknown]
  - Dysphagia [Unknown]
  - Oropharyngeal pain [Unknown]
  - General physical condition abnormal [Unknown]
  - Otorrhoea [Unknown]
  - Dry throat [Unknown]
  - Parosmia [Unknown]
  - Heart rate increased [Unknown]
  - Dizziness [Unknown]
  - Tinnitus [Unknown]
  - Dysgeusia [Unknown]
  - Sputum increased [Unknown]
  - Throat irritation [Unknown]
  - Heart rate irregular [Unknown]
